FAERS Safety Report 10720995 (Version 1)
Quarter: 2015Q1

REPORT INFORMATION
  Report Type: Spontaneous
  Country: SE (occurrence: SE)
  Receive Date: 20150119
  Receipt Date: 20150119
  Transmission Date: 20150721
  Serious: Yes (Disabling)
  Sender: FDA-Public Use
  Company Number: SE-009507513-1501SWE005926

PATIENT
  Age: 55 Year
  Sex: Male

DRUGS (1)
  1. FINASTERIDE. [Suspect]
     Active Substance: FINASTERIDE
     Route: 048

REACTIONS (2)
  - Premature ageing [Not Recovered/Not Resolved]
  - Erectile dysfunction [Not Recovered/Not Resolved]
